FAERS Safety Report 9785414 (Version 1)
Quarter: 2013Q4

REPORT INFORMATION
  Report Type: Spontaneous
  Country: US (occurrence: US)
  Receive Date: 20131227
  Receipt Date: 20131227
  Transmission Date: 20140711
  Serious: Yes (Other)
  Sender: FDA-Public Use
  Company Number: US-BAYER-2013-155420

PATIENT
  Sex: Female
  Weight: 113 kg

DRUGS (1)
  1. ALKA-SELTZER ORIGINAL [Suspect]
     Indication: ABDOMINAL DISCOMFORT
     Dosage: 2 DF, PRN
     Route: 048

REACTIONS (2)
  - Choking [Recovered/Resolved]
  - Dyspnoea [Recovered/Resolved]
